FAERS Safety Report 15452906 (Version 2)
Quarter: 2018Q4

REPORT INFORMATION
  Report Type: Report from Study
  Country: US (occurrence: US)
  Receive Date: 20181001
  Receipt Date: 20181004
  Transmission Date: 20190204
  Serious: Yes (Hospitalization, Other)
  Sender: FDA-Public Use
  Company Number: US-GILEAD-2018-0365609

PATIENT
  Age: 17 Year
  Sex: Male

DRUGS (4)
  1. AQUADEKS                           /07679501/ [Concomitant]
     Active Substance: MINERALS\VITAMINS
  2. PULMOZYME [Concomitant]
     Active Substance: DORNASE ALFA
  3. AZTREONAM LYSINE [Suspect]
     Active Substance: AZTREONAM LYSINE
     Indication: CYSTIC FIBROSIS
     Dosage: 75 MG, TID QOM
     Route: 065
     Dates: start: 201609
  4. XOPENEX [Concomitant]
     Active Substance: LEVALBUTEROL HYDROCHLORIDE

REACTIONS (1)
  - Cystic fibrosis [Unknown]

NARRATIVE: CASE EVENT DATE: 201809
